FAERS Safety Report 15287150 (Version 6)
Quarter: 2019Q2

REPORT INFORMATION
  Report Type: Report from Study
  Country: US (occurrence: US)
  Receive Date: 20180817
  Receipt Date: 20190418
  Transmission Date: 20190711
  Serious: Yes (Death, Hospitalization, Other)
  Sender: FDA-Public Use
  Company Number: US-ROCHE-2143168

PATIENT
  Age: 65 Year
  Sex: Female
  Weight: 84.2 kg

DRUGS (10)
  1. ATEZOLIZUMAB. [Suspect]
     Active Substance: ATEZOLIZUMAB
     Indication: OVARIAN EPITHELIAL CANCER
     Dosage: LAST DOSE PRIOR TO THE SAE RECEIVED ON 29/MAY/2018
     Route: 042
     Dates: start: 20180502
  2. BEVACIZUMAB. [Suspect]
     Active Substance: BEVACIZUMAB
     Indication: OVARIAN EPITHELIAL CANCER
     Dosage: MOST RECENT DOSE (842 MG) ON 15/MAY/2018?LAST DOSE PRIOR TO THE SAE RECEIVED ON 29/MAY/2018
     Route: 042
     Dates: start: 20180502
  3. ATEZOLIZUMAB. [Suspect]
     Active Substance: ATEZOLIZUMAB
     Dosage: LAST DOSE PRIOR TO THE SAE RECEIVED ON 24/JUL/2018
     Route: 042
     Dates: start: 20180724
  4. ASPIRIN. [Concomitant]
     Active Substance: ASPIRIN
  5. OMEGA-3 FATTY ACIDS [Concomitant]
     Active Substance: OMEGA-3 FATTY ACIDS
  6. POTASSIUM CHLORIDE. [Concomitant]
     Active Substance: POTASSIUM CHLORIDE
  7. TRAMADOL. [Concomitant]
     Active Substance: TRAMADOL
  8. CLONAZEPAM. [Concomitant]
     Active Substance: CLONAZEPAM
  9. LIPOSOMAL DOXORUBICIN [Suspect]
     Active Substance: DOXORUBICIN HYDROCHLORIDE
     Indication: OVARIAN EPITHELIAL CANCER
     Dosage: MOST RECENT DOSE (79 MG) ON 02/MAY/2018?LAST DOSE PRIOR TO THE SAE RECEIVED ON 29/MAY/2018
     Route: 042
     Dates: start: 20180502
  10. BACLOFEN. [Concomitant]
     Active Substance: BACLOFEN

REACTIONS (6)
  - Small intestinal obstruction [Not Recovered/Not Resolved]
  - Abdominal pain [Recovered/Resolved]
  - Constipation [Recovered/Resolved]
  - Dehydration [Recovered/Resolved]
  - Cardiac arrest [Fatal]
  - Small intestinal obstruction [Fatal]

NARRATIVE: CASE EVENT DATE: 20180525
